FAERS Safety Report 22611393 (Version 1)
Quarter: 2023Q2

REPORT INFORMATION
  Report Type: Spontaneous
  Country: US (occurrence: US)
  Receive Date: 20230616
  Receipt Date: 20230616
  Transmission Date: 20230721
  Serious: Yes (Other)
  Sender: FDA-Public Use
  Company Number: US-BAYER-2023A080118

PATIENT
  Sex: Male

DRUGS (1)
  1. XOFIGO [Suspect]
     Active Substance: RADIUM RA-223 DICHLORIDE
     Dosage: UNK
     Dates: start: 20230419, end: 20230419

REACTIONS (5)
  - Medical procedure [None]
  - Obesity [None]
  - Full blood count abnormal [None]
  - Hypoaesthesia [None]
  - Feeding disorder [None]

NARRATIVE: CASE EVENT DATE: 20230528
